FAERS Safety Report 21602798 (Version 1)
Quarter: 2022Q4

REPORT INFORMATION
  Report Type: Report from Study
  Country: US (occurrence: US)
  Receive Date: 20221116
  Receipt Date: 20221116
  Transmission Date: 20230113
  Serious: No
  Sender: FDA-Public Use
  Company Number: US-ABBVIE-4156592

PATIENT
  Age: 33 Year
  Sex: Male

DRUGS (1)
  1. HUMIRA [Suspect]
     Active Substance: ADALIMUMAB
     Indication: Hidradenitis
     Dosage: CITRATE FREE?40 MILLIGRAM
     Route: 058
     Dates: start: 20220824

REACTIONS (2)
  - Injection site pain [Recovered/Resolved]
  - Injection site urticaria [Recovered/Resolved]

NARRATIVE: CASE EVENT DATE: 20220921
